FAERS Safety Report 4366713-5 (Version None)
Quarter: 2004Q2

REPORT INFORMATION
  Report Type: 
  Country: None (occurrence: None)
  Receive Date: 20040527
  Receipt Date: 20040324
  Transmission Date: 20050107
  Serious: Yes (Disabling, Other)
  Sender: FDA-Public Use
  Company Number: SG-MERCK-0404SGP00001

PATIENT
  Age: 97 Year
  Sex: Male
  Weight: 63 kg

DRUGS (6)
  1. FOSAMAX [Suspect]
     Indication: OSTEOPOROSIS
     Route: 048
     Dates: start: 19970701, end: 20040101
  2. ALFUZOSIN HYDROCHLORIDE [Concomitant]
     Indication: BENIGN PROSTATIC HYPERPLASIA
     Route: 048
  3. ATORVASTATIN CALCIUM [Concomitant]
     Route: 048
  4. CALCIUM (UNSPECIFIED) [Concomitant]
     Route: 048
  5. PROSCAR [Concomitant]
     Indication: BENIGN PROSTATIC HYPERPLASIA
     Route: 048
  6. COZAAR [Concomitant]
     Indication: HYPERTENSION
     Route: 048
     Dates: start: 19950701

REACTIONS (5)
  - ASEPTIC NECROSIS BONE [None]
  - CHOLECYSTITIS ACUTE [None]
  - EXOSTOSIS [None]
  - FEMORAL NECK FRACTURE [None]
  - SINUSITIS [None]
